FAERS Safety Report 18618573 (Version 5)
Quarter: 2021Q1

REPORT INFORMATION
  Report Type: Spontaneous
  Country: TN (occurrence: TN)
  Receive Date: 20201215
  Receipt Date: 20210208
  Transmission Date: 20210419
  Serious: Yes (Other)
  Sender: FDA-Public Use
  Company Number: TN-PFIZER INC-2020489141

PATIENT
  Age: 45 Year
  Sex: Female
  Weight: 70 kg

DRUGS (6)
  1. PACLITAXEL. [Suspect]
     Active Substance: PACLITAXEL
     Indication: CHEMOTHERAPY
     Dosage: 80 MG/M2, WEEKLY
     Dates: start: 20190827, end: 20191121
  2. PACLITAXEL. [Suspect]
     Active Substance: PACLITAXEL
     Dosage: 80 MG/M2, CYCLIC (WEEKLY, INFUSION)
     Route: 042
     Dates: start: 20200420, end: 20200527
  3. PACLITAXEL. [Suspect]
     Active Substance: PACLITAXEL
     Indication: METASTASES TO PERITONEUM
     Dosage: UNK (20% DOSE REDUCTION)
  4. LETROZOLE. [Concomitant]
     Active Substance: LETROZOLE
     Indication: BREAST CANCER METASTATIC
     Dosage: UNK
     Dates: start: 201911, end: 20200201
  5. LETROZOLE. [Concomitant]
     Active Substance: LETROZOLE
     Indication: CHEMOTHERAPY
     Dosage: UNK
  6. PACLITAXEL. [Suspect]
     Active Substance: PACLITAXEL
     Indication: METASTASES TO LIVER
     Dosage: 80 MG/M2, WEEKLY
     Dates: start: 20191121

REACTIONS (9)
  - Palmar-plantar erythrodysaesthesia syndrome [Recovered/Resolved]
  - Skin exfoliation [Unknown]
  - Skin lesion [Unknown]
  - Skin ulcer [Unknown]
  - Alopecia [Recovered/Resolved]
  - Epidermal necrosis [Unknown]
  - Skin haemorrhage [Unknown]
  - Onycholysis [Unknown]
  - Nail toxicity [Recovered/Resolved]

NARRATIVE: CASE EVENT DATE: 20191127
